FAERS Safety Report 15751592 (Version 2)
Quarter: 2019Q1

REPORT INFORMATION
  Report Type: Report from Study
  Country: US (occurrence: US)
  Receive Date: 20181221
  Receipt Date: 20190111
  Transmission Date: 20190417
  Serious: Yes (Hospitalization, Other)
  Sender: FDA-Public Use
  Company Number: US-GILEAD-2018-0381178

PATIENT
  Age: 77 Year
  Sex: Female

DRUGS (1)
  1. AMBRISENTAN [Suspect]
     Active Substance: AMBRISENTAN
     Indication: PULMONARY HYPERTENSION
     Dosage: 5 MG, QD
     Route: 065
     Dates: start: 20180608

REACTIONS (7)
  - Dyspnoea [Unknown]
  - Pneumonia [Unknown]
  - Intentional dose omission [Not Recovered/Not Resolved]
  - Haemoptysis [Unknown]
  - Lung infection [Unknown]
  - Vomiting [Unknown]
  - Pleural effusion [Unknown]
